FAERS Safety Report 11281592 (Version 2)
Quarter: 2015Q3

REPORT INFORMATION
  Report Type: Spontaneous
  Country: US (occurrence: US)
  Receive Date: 20150717
  Receipt Date: 20150806
  Transmission Date: 20151125
  Serious: Yes (Other)
  Sender: FDA-Public Use
  Company Number: US-ENDO PHARMACEUTICALS INC.-2015-001842

PATIENT
  Age: 60 Year
  Sex: Female
  Weight: 69.01 kg

DRUGS (1)
  1. XIAFLEX [Suspect]
     Active Substance: COLLAGENASE CLOSTRIDIUM HISTOLYTICUM
     Indication: DUPUYTREN^S CONTRACTURE
     Route: 026
     Dates: start: 20150707, end: 20150707

REACTIONS (2)
  - Condition aggravated [Recovered/Resolved]
  - Segmented hyalinising vasculitis [Recovered/Resolved]

NARRATIVE: CASE EVENT DATE: 20150707
